FAERS Safety Report 22192321 (Version 1)
Quarter: 2023Q2

REPORT INFORMATION
  Report Type: Spontaneous
  Country: US (occurrence: None)
  Receive Date: 20230409
  Receipt Date: 20230409
  Transmission Date: 20230721
  Serious: Yes (Hospitalization)
  Sender: FDA-Public Use
  Company Number: None

PATIENT
  Sex: Male

DRUGS (10)
  1. MESNEX [Suspect]
     Active Substance: MESNA
     Indication: Penile cancer
     Dosage: FREQUENCY : DAILY;?
     Route: 048
     Dates: start: 202212
  2. ASPIRIN [Concomitant]
  3. ELIQUIS [Concomitant]
  4. LISINOPRIL [Concomitant]
  5. MAGNESIUM OXIDE [Concomitant]
  6. METOPROLOL [Concomitant]
     Active Substance: METOPROLOL
  7. SIMVASTATIN [Concomitant]
  8. TIKOSYN [Concomitant]
  9. VITAMIN B12 [Concomitant]
     Active Substance: CYANOCOBALAMIN
  10. VITAMIN D3 [Concomitant]

REACTIONS (1)
  - Fall [None]
